FAERS Safety Report 10004597 (Version 1)
Quarter: 2014Q1

REPORT INFORMATION
  Report Type: Spontaneous
  Country: US (occurrence: US)
  Receive Date: 20140312
  Receipt Date: 20140312
  Transmission Date: 20141002
  Serious: No
  Sender: FDA-Public Use
  Company Number: US-INCYTE CORPORATION-2013IN003045

PATIENT
  Age: 62 Year
  Sex: Female
  Weight: 44.9 kg

DRUGS (6)
  1. JAKAFI [Suspect]
     Dosage: 5 MG, BID
     Route: 048
     Dates: start: 201311
  2. GAS X [Concomitant]
  3. DULCOLAX                           /00064401/ [Concomitant]
  4. ACETAMINOPHEN [Concomitant]
  5. PHILLIPS COLON HEALTH [Concomitant]
  6. VITAMIN D3 [Concomitant]

REACTIONS (2)
  - Flatulence [Unknown]
  - Abdominal distension [Unknown]
